FAERS Safety Report 4283637-2 (Version None)
Quarter: 2004Q1

REPORT INFORMATION
  Report Type: 
  Country: None (occurrence: None)
  Receive Date: 20040129
  Receipt Date: 20040129
  Transmission Date: 20041129
  Serious: Yes (Life-Threatening)
  Sender: FDA-Public Use
  Company Number: None

PATIENT
  Age: 24 Year
  Sex: Female
  Weight: 65.7716 kg

DRUGS (5)
  1. METHADONE HCL [Suspect]
     Indication: MIGRAINE
     Dosage: 10 MG PO Q4 HOURS
     Route: 048
     Dates: start: 20030812, end: 20030817
  2. DEMEROL [Concomitant]
  3. IMITREX [Concomitant]
  4. VALIUM [Concomitant]
  5. OXYCONTIN [Concomitant]

REACTIONS (2)
  - DEPRESSED LEVEL OF CONSCIOUSNESS [None]
  - HYPOXIA [None]
